FAERS Safety Report 4676480-3 (Version None)
Quarter: 2005Q2

REPORT INFORMATION
  Report Type: 
  Country: None (occurrence: None)
  Receive Date: 20050527
  Receipt Date: 20050519
  Transmission Date: 20051028
  Serious: Yes (Hospitalization)
  Sender: FDA-Public Use
  Company Number: US-KINGPHARMUSA00001-K200500656

PATIENT
  Age: 57 Year
  Sex: Male

DRUGS (4)
  1. ALTACE [Suspect]
     Dosage: 2.5 MG, QD
     Route: 048
  2. ASPIRIN [Concomitant]
     Route: 048
  3. LIPOSTAT 10% [Concomitant]
     Route: 048
  4. LACTULOSE [Concomitant]
     Dosage: UNK, PRN
     Route: 048

REACTIONS (10)
  - BACK PAIN [None]
  - GAIT DISTURBANCE [None]
  - HYPOAESTHESIA [None]
  - LIP PAIN [None]
  - MICTURITION URGENCY [None]
  - MYOCLONUS [None]
  - NERVOUS SYSTEM DISORDER [None]
  - PROCTALGIA [None]
  - SENSORY LOSS [None]
  - VISION BLURRED [None]
